FAERS Safety Report 4884875-8 (Version None)
Quarter: 2006Q1

REPORT INFORMATION
  Report Type: 
  Country: None (occurrence: None)
  Receive Date: 20060119
  Receipt Date: 20060113
  Transmission Date: 20060701
  Serious: Yes (Death)
  Sender: FDA-Public Use
  Company Number: CZ-GLAXOSMITHKLINE-B0406736A

PATIENT
  Age: 81 Year
  Sex: Female

DRUGS (8)
  1. FONDAPARINUX SODIUM [Suspect]
     Indication: ANGINA UNSTABLE
     Dosage: 2.5MG PER DAY
     Route: 058
     Dates: start: 20041116, end: 20041123
  2. ANOPYRIN [Concomitant]
  3. ASPEGIC [Concomitant]
  4. CLOPIDOGREL [Concomitant]
  5. HEPARIN [Concomitant]
  6. PRESTARIUM [Concomitant]
  7. VASOCARDIN [Concomitant]
  8. SORTIS [Concomitant]

REACTIONS (3)
  - LOSS OF CONSCIOUSNESS [None]
  - PUNCTURE SITE HAEMORRHAGE [None]
  - SHOCK HAEMORRHAGIC [None]
